FAERS Safety Report 7393510-9 (Version None)
Quarter: 2011Q2

REPORT INFORMATION
  Report Type: 
  Country: None (occurrence: None)
  Receive Date: 20110405
  Receipt Date: 20110224
  Transmission Date: 20111010
  Serious: Yes (Other)
  Sender: FDA-Public Use
  Company Number: US-JNJFOC-20110300488

PATIENT
  Sex: Female

DRUGS (4)
  1. ISENTRESS [Concomitant]
     Indication: HIV INFECTION
     Route: 065
  2. TRUVADA [Concomitant]
     Indication: HIV INFECTION
     Route: 065
  3. RITONAVIR [Concomitant]
     Indication: HIV INFECTION
     Route: 065
  4. PREZISTA [Suspect]
     Indication: HIV INFECTION
     Route: 065

REACTIONS (2)
  - WEIGHT INCREASED [None]
  - OEDEMA [None]
